FAERS Safety Report 24331198 (Version 1)
Quarter: 2024Q3

REPORT INFORMATION
  Report Type: Spontaneous
  Country: US (occurrence: US)
  Receive Date: 20240918
  Receipt Date: 20240918
  Transmission Date: 20241016
  Serious: No
  Sender: JOHNSON AND JOHNSON
  Company Number: US-JNJFOC-20240934747

PATIENT
  Age: 47 Year
  Sex: Female
  Weight: 73.9 kg

DRUGS (10)
  1. UPTRAVI [Suspect]
     Active Substance: SELEXIPAG
     Indication: Product used for unknown indication
     Route: 048
     Dates: end: 2024
  2. TYVASO DPI [Suspect]
     Active Substance: TREPROSTINIL
     Indication: Pulmonary arterial hypertension
     Dosage: DELIVERED BY TYVASO DRY POWDER INHALER
     Route: 055
     Dates: start: 20240209, end: 2024
  3. TYVASO DPI [Suspect]
     Active Substance: TREPROSTINIL
     Dosage: USING TWO 16 UG, FOUR TIMES DAILY
     Route: 055
     Dates: start: 2024
  4. BIFIDOBACTERIUM ANIMALIS LACTIS [Concomitant]
     Active Substance: BIFIDOBACTERIUM ANIMALIS LACTIS
  5. OXYGEN [Concomitant]
     Active Substance: OXYGEN
  6. POTASSIUM [Concomitant]
     Active Substance: POTASSIUM
  7. MAGNESIUM [Concomitant]
     Active Substance: MAGNESIUM
  8. SILDENAFIL CITRATE [Concomitant]
     Active Substance: SILDENAFIL CITRATE
  9. TORSEMIDE [Concomitant]
     Active Substance: TORSEMIDE
  10. TRIAMCINOLONE ACETONIDE [Concomitant]
     Active Substance: TRIAMCINOLONE ACETONIDE

REACTIONS (1)
  - Drug tolerance decreased [Unknown]

NARRATIVE: CASE EVENT DATE: 20240101
